FAERS Safety Report 10519053 (Version 1)
Quarter: 2014Q4

REPORT INFORMATION
  Report Type: Spontaneous
  Country: US (occurrence: None)
  Receive Date: 20141014
  Receipt Date: 20141014
  Transmission Date: 20150528
  Serious: Yes (Hospitalization)
  Sender: FDA-Public Use
  Company Number: None

PATIENT
  Age: 73 Year
  Sex: Female
  Weight: 112 kg

DRUGS (1)
  1. WARFARIN 7.5MG UNKNOWN [Suspect]
     Active Substance: WARFARIN
     Indication: FEMUR FRACTURE
     Dosage: 1 TABLET QD ORAL
     Route: 048
     Dates: start: 20140629, end: 20140629

REACTIONS (2)
  - Sepsis [None]
  - Pulmonary embolism [None]

NARRATIVE: CASE EVENT DATE: 20140702
